FAERS Safety Report 13229202 (Version 2)
Quarter: 2017Q2

REPORT INFORMATION
  Report Type: Spontaneous
  Country: US (occurrence: US)
  Receive Date: 20170214
  Receipt Date: 20170609
  Transmission Date: 20170830
  Serious: No
  Sender: FDA-Public Use
  Company Number: US-TEVA-728477ACC

PATIENT
  Sex: Male

DRUGS (1)
  1. NUVIGIL [Suspect]
     Active Substance: ARMODAFINIL
     Dates: start: 20161219

REACTIONS (2)
  - Therapeutic response unexpected [Unknown]
  - Heart rate increased [Unknown]
